FAERS Safety Report 9531101 (Version 1)
Quarter: 2013Q2

REPORT INFORMATION
  Report Type: Spontaneous
  Country: US (occurrence: None)
  Receive Date: 20130402
  Receipt Date: 20130402
  Transmission Date: 20140414
  Serious: Yes (Hospitalization)
  Sender: FDA-Public Use
  Company Number: 2013-000140

PATIENT
  Age: 30 Year
  Sex: Female

DRUGS (1)
  1. LOESTRIN 24 FE [Suspect]
     Indication: CONTRACEPTION
     Route: 048
     Dates: start: 201107, end: 201211

REACTIONS (12)
  - Cerebrovascular accident [None]
  - Migraine [None]
  - Intervertebral disc injury [None]
  - Asthenia [None]
  - Abasia [None]
  - Loss of consciousness [None]
  - Dizziness [None]
  - Vision blurred [None]
  - Pain in extremity [None]
  - Hypoaesthesia [None]
  - Vertigo [None]
  - Muscular weakness [None]
